FAERS Safety Report 6579796-9 (Version None)
Quarter: 2010Q1

REPORT INFORMATION
  Report Type: 
  Country: None (occurrence: None)
  Receive Date: 20100212
  Receipt Date: 20100209
  Transmission Date: 20100710
  Serious: Yes (Death)
  Sender: FDA-Public Use
  Company Number: DE-ROCHE-684030

PATIENT
  Sex: Female

DRUGS (1)
  1. XELODA [Suspect]
     Dosage: 3-0-3
     Route: 048
     Dates: start: 20090703, end: 20091201

REACTIONS (1)
  - MALIGNANT NEOPLASM PROGRESSION [None]
